FAERS Safety Report 8791933 (Version 2)
Quarter: 2012Q4

REPORT INFORMATION
  Report Type: 
  Country: JP (occurrence: JP)
  Receive Date: 20120918
  Receipt Date: 20121012
  Transmission Date: 20130627
  Serious: No
  Sender: FDA-Public Use
  Company Number: JP-SANOFI-AVENTIS-2012SA066998

PATIENT
  Sex: Female

DRUGS (2)
  1. ARAVA [Suspect]
     Indication: DRUG USE FOR UNKNOWN INDICATION
     Route: 048
  2. QUESTRAN [Concomitant]
     Route: 048
     Dates: start: 20120827

REACTIONS (1)
  - Exposure during pregnancy [Unknown]
